FAERS Safety Report 6796131-1 (Version None)
Quarter: 2010Q2

REPORT INFORMATION
  Report Type: 
  Country: None (occurrence: None)
  Receive Date: 20100625
  Receipt Date: 20100617
  Transmission Date: 20101027
  Serious: Yes (Other)
  Sender: FDA-Public Use
  Company Number: ZA-WYE-G06285810

PATIENT

DRUGS (3)
  1. TYGACIL [Suspect]
  2. VFEND [Suspect]
  3. ZYVOXID [Suspect]

REACTIONS (3)
  - PYREXIA [None]
  - RASH [None]
  - RENAL FAILURE ACUTE [None]
